FAERS Safety Report 23143648 (Version 1)
Quarter: 2023Q4

REPORT INFORMATION
  Report Type: Other
  Country: BR (occurrence: BR)
  Receive Date: 20231103
  Receipt Date: 20231103
  Transmission Date: 20240109
  Serious: Yes (Death, Hospitalization, Other)
  Sender: FDA-Public Use
  Company Number: BR-SERVIER DO BRASIL-S23012580

PATIENT

DRUGS (1)
  1. ONCASPAR [Suspect]
     Active Substance: PEGASPARGASE
     Indication: T-cell lymphoma
     Dosage: UNK
     Route: 065

REACTIONS (7)
  - Septic shock [Fatal]
  - Acute kidney injury [Fatal]
  - Disseminated intravascular coagulation [Fatal]
  - Diarrhoea haemorrhagic [Unknown]
  - Pancytopenia [Unknown]
  - Seizure [Unknown]
  - Thrombosis [Recovered/Resolved]
